FAERS Safety Report 8372573-8 (Version None)
Quarter: 2012Q2

REPORT INFORMATION
  Report Type: 
  Country: None (occurrence: None)
  Receive Date: 20120521
  Receipt Date: 20120507
  Transmission Date: 20120825
  Serious: Yes (Death, Hospitalization, Congenital Anomaly, Other)
  Sender: FDA-Public Use
  Company Number: DE-MYLANLABS-2012S1009430

PATIENT
  Age: 0 Year
  Sex: Female
  Weight: 2.97 kg

DRUGS (9)
  1. METFORMIN HCL [Suspect]
     Route: 064
  2. APSOMOL /00139501/ [Concomitant]
     Route: 064
     Dates: start: 20101220, end: 20101225
  3. CETIRIZINE HCL [Concomitant]
     Route: 064
  4. UTROGEST [Concomitant]
     Route: 064
     Dates: start: 20100912, end: 20101114
  5. KADEFUNGIN [Concomitant]
     Route: 064
  6. EBENOL [Concomitant]
     Route: 064
     Dates: start: 20101114, end: 20101117
  7. LEVOTHYROXINE SODIUM [Concomitant]
     Route: 064
     Dates: start: 20100913, end: 20110626
  8. EMSER SALZ [Concomitant]
     Route: 064
     Dates: start: 20101220, end: 20101226
  9. FOLIO FORTE [Concomitant]
     Indication: PROPHYLAXIS OF NEURAL TUBE DEFECT
     Route: 064
     Dates: start: 20100919, end: 20110404

REACTIONS (5)
  - TURNER'S SYNDROME [None]
  - MATERNAL EXPOSURE DURING PREGNANCY [None]
  - FOETAL HEART RATE DECELERATION [None]
  - LOW BIRTH WEIGHT BABY [None]
  - HYPOPLASTIC LEFT HEART SYNDROME [None]
